FAERS Safety Report 18109556 (Version 1)
Quarter: 2020Q3

REPORT INFORMATION
  Report Type: Spontaneous
  Country: JP (occurrence: JP)
  Receive Date: 20200804
  Receipt Date: 20200804
  Transmission Date: 20201103
  Serious: Yes (Death, Other)
  Sender: FDA-Public Use
  Company Number: JP-009507513-2008JPN000971

PATIENT
  Age: 57 Year
  Sex: Male

DRUGS (2)
  1. TEMOZOLOMIDE. [Suspect]
     Active Substance: TEMOZOLOMIDE
     Indication: GLIOBLASTOMA
     Dosage: 75 MILLIGRAM/SQ. METER, FOR 36 DAYS, INITIAL CHEMOTHERAPY
     Route: 048
  2. TEMOZOLOMIDE. [Suspect]
     Active Substance: TEMOZOLOMIDE
     Dosage: 150 MILLIGRAM/SQ. METER, FOR 5 DAYS, EVERY 28?DAY CYCLE, 3 CYCLES, MAINTENANCE THERAPY
     Route: 048

REACTIONS (2)
  - Pneumonia staphylococcal [Fatal]
  - Lymphopenia [Recovered/Resolved]
